FAERS Safety Report 8933028 (Version 1)
Quarter: 2012Q4

REPORT INFORMATION
  Report Type: 
  Country: US (occurrence: US)
  Receive Date: 20121129
  Receipt Date: 20121129
  Transmission Date: 20130627
  Serious: Yes (Other)
  Sender: FDA-Public Use
  Company Number: PHEH2012US023168

PATIENT
  Age: 57 None
  Sex: Female
  Weight: 53.97 kg

DRUGS (2)
  1. ZOMETA [Suspect]
     Indication: METASTASES TO BONE
     Dosage: 4 mg,QD
     Route: 042
     Dates: start: 2008, end: 20120517
  2. RANMARK [Suspect]
     Indication: METASTASES TO BONE
     Dosage: 120 mg, QD
     Route: 058
     Dates: start: 20120621

REACTIONS (5)
  - Osteonecrosis of jaw [Not Recovered/Not Resolved]
  - Gingival swelling [Unknown]
  - Tooth loss [Unknown]
  - Purulent discharge [Unknown]
  - Bone disorder [Unknown]
